FAERS Safety Report 17971616 (Version 2)
Quarter: 2020Q3

REPORT INFORMATION
  Report Type: Spontaneous
  Country: TR (occurrence: TR)
  Receive Date: 20200702
  Receipt Date: 20200721
  Transmission Date: 20201103
  Serious: Yes (Death, Hospitalization, Other)
  Sender: FDA-Public Use
  Company Number: TR-SA-2020SA168559

PATIENT

DRUGS (4)
  1. LEMTRADA [Suspect]
     Active Substance: ALEMTUZUMAB
     Indication: MULTIPLE SCLEROSIS
     Dosage: UNK
     Route: 041
     Dates: start: 2018, end: 2018
  2. LEMTRADA [Suspect]
     Active Substance: ALEMTUZUMAB
     Dosage: UNK
     Route: 041
     Dates: start: 2019, end: 2019
  3. FAMPRIDINE [Concomitant]
     Active Substance: DALFAMPRIDINE
  4. TOVIAZ [Concomitant]
     Active Substance: FESOTERODINE FUMARATE
     Indication: INCONTINENCE

REACTIONS (16)
  - Bilirubin conjugated abnormal [Unknown]
  - Schistocytosis [Unknown]
  - Platelet count abnormal [Unknown]
  - White blood cell disorder [Unknown]
  - Reticulocyte count abnormal [Unknown]
  - Epstein-Barr virus antibody positive [Unknown]
  - Haptoglobin decreased [Unknown]
  - Reticulocytosis [Unknown]
  - Blood lactate dehydrogenase increased [Unknown]
  - Reticulocyte percentage abnormal [Unknown]
  - Procalcitonin abnormal [Unknown]
  - Parvovirus B19 test positive [Unknown]
  - ADAMTS13 activity decreased [Fatal]
  - Hepatitis B surface antibody positive [Unknown]
  - Blood bilirubin abnormal [Unknown]
  - Thrombotic thrombocytopenic purpura [Fatal]

NARRATIVE: CASE EVENT DATE: 20200618
